FAERS Safety Report 8030434-8 (Version None)
Quarter: 2012Q1

REPORT INFORMATION
  Report Type: 
  Country: None (occurrence: None)
  Receive Date: 20120109
  Receipt Date: 20120109
  Transmission Date: 20120608
  Serious: Yes (Life-Threatening, Other)
  Sender: FDA-Public Use
  Company Number: None

PATIENT
  Sex: Male
  Weight: 100.24 kg

DRUGS (1)
  1. MEFLOQUINE HYDROCHLORIDE [Suspect]

REACTIONS (7)
  - BALANCE DISORDER [None]
  - ANGER [None]
  - DEPRESSION [None]
  - TINNITUS [None]
  - SOMNAMBULISM [None]
  - AMNESIA [None]
  - HOMICIDAL IDEATION [None]
